FAERS Safety Report 21323046 (Version 3)
Quarter: 2022Q4

REPORT INFORMATION
  Report Type: Spontaneous
  Country: AR (occurrence: AR)
  Receive Date: 20220912
  Receipt Date: 20221005
  Transmission Date: 20230112
  Serious: Yes (Hospitalization, Other)
  Sender: FDA-Public Use
  Company Number: AR-PFIZER INC-PV202200059232

PATIENT
  Age: 71 Year
  Sex: Female

DRUGS (1)
  1. XELJANZ XR [Suspect]
     Active Substance: TOFACITINIB CITRATE
     Indication: Rheumatoid arthritis
     Dosage: 11 MG, 1X/DAY
     Dates: start: 20210429

REACTIONS (11)
  - Cholelithiasis [Not Recovered/Not Resolved]
  - Asthma [Unknown]
  - Diverticulitis [Not Recovered/Not Resolved]
  - Pyrexia [Not Recovered/Not Resolved]
  - Emotional distress [Unknown]
  - Malaise [Unknown]
  - Gait inability [Unknown]
  - Pain in extremity [Unknown]
  - Product dispensing error [Unknown]
  - Product administration interrupted [Unknown]
  - Pain [Unknown]

NARRATIVE: CASE EVENT DATE: 20210101
